FAERS Safety Report 18916704 (Version 1)
Quarter: 2021Q1

REPORT INFORMATION
  Report Type: Spontaneous
  Country: CN (occurrence: CN)
  Receive Date: 20210219
  Receipt Date: 20210219
  Transmission Date: 20210420
  Serious: Yes (Hospitalization)
  Sender: FDA-Public Use
  Company Number: CN-BAXTER-2021BAX003226

PATIENT
  Age: 27 Year
  Sex: Male
  Weight: 51 kg

DRUGS (2)
  1. ENDOXAN [Suspect]
     Active Substance: CYCLOPHOSPHAMIDE
     Indication: ACUTE MYELOID LEUKAEMIA
     Route: 041
     Dates: start: 20201229, end: 20201230
  2. MEIAN [MESNA] [Suspect]
     Active Substance: MESNA
     Indication: ACUTE MYELOID LEUKAEMIA
     Route: 041
     Dates: start: 20201229, end: 20201230

REACTIONS (1)
  - Gastrointestinal haemorrhage [Recovering/Resolving]

NARRATIVE: CASE EVENT DATE: 20210102
